FAERS Safety Report 5292948-3 (Version None)
Quarter: 2007Q2

REPORT INFORMATION
  Report Type: 
  Country: None (occurrence: None)
  Receive Date: 20070411
  Receipt Date: 20070403
  Transmission Date: 20071010
  Serious: Yes (Other)
  Sender: FDA-Public Use
  Company Number: AU-JNJFOC-20070400827

PATIENT
  Sex: Female

DRUGS (9)
  1. REMINYL [Suspect]
     Indication: DRUG USE FOR UNKNOWN INDICATION
  2. PARACETAMOL [Suspect]
  3. PARACETAMOL [Suspect]
     Indication: DRUG USE FOR UNKNOWN INDICATION
  4. AVAPRO HCT [Concomitant]
  5. CARTIA XT [Concomitant]
  6. IMDUR [Concomitant]
  7. IMODIUM [Concomitant]
  8. LIPITOR [Concomitant]
  9. MINAX [Concomitant]

REACTIONS (3)
  - AMNESIA [None]
  - DISTURBANCE IN ATTENTION [None]
  - LIVER FUNCTION TEST ABNORMAL [None]
